FAERS Safety Report 6158854-7 (Version None)
Quarter: 2009Q2

REPORT INFORMATION
  Report Type: 
  Country: None (occurrence: None)
  Receive Date: 20090417
  Receipt Date: 20090410
  Transmission Date: 20091009
  Serious: Yes (Hospitalization, Other)
  Sender: FDA-Public Use
  Company Number: PHHY2009JP10015

PATIENT
  Age: 54 Year
  Sex: Female
  Weight: 38 kg

DRUGS (6)
  1. NEORAL [Suspect]
     Indication: RENAL TRANSPLANT
     Dosage: 120 MG/DAY
     Route: 048
     Dates: start: 19950101
  2. NEORAL [Suspect]
     Dosage: UNK
     Route: 048
  3. AZATHIOPRINE [Suspect]
     Indication: RENAL TRANSPLANT
     Dosage: 25 MG/DAY
     Route: 048
  4. MIZORIBINE [Suspect]
     Indication: RENAL TRANSPLANT
     Dosage: 75 MG/DAY
     Route: 048
  5. METHYLPREDNISOLONE 4MG TAB [Suspect]
     Indication: RENAL TRANSPLANT
     Dosage: 8 MG/DAY
     Route: 048
  6. PREDONINE [Concomitant]
     Indication: RENAL TRANSPLANT
     Dosage: 8 MG
     Route: 048

REACTIONS (11)
  - DEBRIDEMENT [None]
  - DIFFUSE LARGE B-CELL LYMPHOMA STAGE I [None]
  - EPSTEIN-BARR VIRUS ASSOCIATED LYMPHOPROLIFERATIVE DISORDER [None]
  - EPSTEIN-BARR VIRUS INFECTION [None]
  - LIPOMA [None]
  - PANNICULITIS [None]
  - RENAL IMPAIRMENT [None]
  - SKIN ULCER [None]
  - SPINAL COMPRESSION FRACTURE [None]
  - SUBCUTANEOUS NODULE [None]
  - VASCULITIS [None]
